FAERS Safety Report 24132093 (Version 9)
Quarter: 2025Q3

REPORT INFORMATION
  Report Type: Report from Study
  Country: CN (occurrence: CN)
  Receive Date: 20240724
  Receipt Date: 20250925
  Transmission Date: 20251021
  Serious: Yes (Other)
  Sender: ROCHE
  Company Number: CN-ROCHE-3570527

PATIENT
  Age: 84 Year
  Sex: Male
  Weight: 68 kg

DRUGS (38)
  1. POLATUZUMAB VEDOTIN [Suspect]
     Active Substance: POLATUZUMAB VEDOTIN
     Indication: Diffuse large B-cell lymphoma
     Dosage: THE DATE OF MOST RECENT DOSE OF POLATUZUMAB AT 120MG ONCE BY INTRAVENOUS DRIP WAS FROM 20 MAR 2024 T
     Route: 042
     Dates: start: 20240118, end: 20240118
  2. CYCLOPHOSPHAMIDE [Suspect]
     Active Substance: CYCLOPHOSPHAMIDE
     Indication: Diffuse large B-cell lymphoma
     Route: 042
     Dates: start: 20240118, end: 20240118
  3. RITUXIMAB [Suspect]
     Active Substance: RITUXIMAB
     Indication: Diffuse large B-cell lymphoma
     Route: 042
     Dates: start: 20240117, end: 20240117
  4. RITUXIMAB [Suspect]
     Active Substance: RITUXIMAB
     Route: 042
     Dates: start: 20240223, end: 20240223
  5. RITUXIMAB [Suspect]
     Active Substance: RITUXIMAB
     Route: 042
     Dates: start: 20240319, end: 20240319
  6. DOXORUBICIN HYDROCHLORIDE, LIPOSOMAL [Suspect]
     Active Substance: DOXORUBICIN HYDROCHLORIDE
     Indication: Diffuse large B-cell lymphoma
     Route: 042
     Dates: start: 20240118, end: 20240118
  7. PREDNISONE ACETATE [Suspect]
     Active Substance: PREDNISONE ACETATE
     Indication: Diffuse large B-cell lymphoma
     Route: 048
     Dates: start: 20240118, end: 20240122
  8. PREDNISONE [Suspect]
     Active Substance: PREDNISONE
     Indication: Diffuse large B-cell lymphoma
     Route: 048
     Dates: start: 20240118, end: 20240122
  9. CEFACLOR [Concomitant]
     Active Substance: CEFACLOR
     Route: 048
     Dates: start: 20240118
  10. PEGYLATED RECOMBINANT HUMAN GRANULOCYTE COLONY STIMULATING FACTOR [Concomitant]
     Indication: Prophylaxis
     Route: 058
     Dates: start: 20240117, end: 20240227
  11. PROMETHAZINE [Concomitant]
     Active Substance: PROMETHAZINE HYDROCHLORIDE
     Dosage: FOR ANTIALLERGIC
     Route: 030
     Dates: start: 20240223, end: 20240226
  12. ENTECAVIR [Concomitant]
     Active Substance: ENTECAVIR
     Route: 048
     Dates: start: 20240225
  13. LEUCOGEN [Concomitant]
     Active Substance: LEUCOGEN
     Indication: Prophylaxis
     Route: 048
     Dates: start: 20240118, end: 20240227
  14. TRIMETAZIDINE DIHYDROCHLORIDE [Concomitant]
     Active Substance: TRIMETAZIDINE DIHYDROCHLORIDE
     Indication: Angina pectoris
     Route: 048
     Dates: start: 20240122, end: 20240220
  15. DIETARY SUPPLEMENT\UBIDECARENONE [Concomitant]
     Active Substance: DIETARY SUPPLEMENT\UBIDECARENONE
     Dosage: FOR VEGETATIVE NERVE
     Route: 048
     Dates: start: 20240122
  16. BISOPROLOL FUMARATE [Concomitant]
     Active Substance: BISOPROLOL FUMARATE
     Indication: Cardiac failure
     Route: 048
     Dates: start: 20240122, end: 20240225
  17. BISOPROLOL FUMARATE [Concomitant]
     Active Substance: BISOPROLOL FUMARATE
     Route: 048
     Dates: start: 20240225
  18. NITROGLYCERIN [Concomitant]
     Active Substance: NITROGLYCERIN
     Route: 048
     Dates: start: 20240122
  19. METRONIDAZOLE [Concomitant]
     Active Substance: METRONIDAZOLE
     Dosage: FOR ANTI-INFLAMMATORY
     Route: 048
     Dates: start: 20240201, end: 202403
  20. CEFOPERAZONE SODIUM\SULBACTAM SODIUM [Concomitant]
     Active Substance: CEFOPERAZONE SODIUM\SULBACTAM SODIUM
     Indication: Prophylaxis
     Route: 042
     Dates: start: 20240319, end: 20240319
  21. VORICONAZOLE [Concomitant]
     Active Substance: VORICONAZOLE
     Indication: Prophylaxis
     Route: 042
     Dates: start: 20240319, end: 20240319
  22. NITRENDIPINE [Concomitant]
     Active Substance: NITRENDIPINE
     Route: 048
     Dates: start: 2023
  23. HUMAN IMMUNOGLOBULIN G [Concomitant]
     Active Substance: HUMAN IMMUNOGLOBULIN G
     Dosage: FOR IMMUNOREGULATION
     Route: 042
     Dates: start: 20240319, end: 20240323
  24. TORSEMIDE [Concomitant]
     Active Substance: TORSEMIDE
     Indication: Polyuria
     Route: 048
     Dates: start: 20240321, end: 20240326
  25. SPIRONOLACTONE [Concomitant]
     Active Substance: SPIRONOLACTONE
     Indication: Polyuria
     Route: 048
     Dates: start: 20240321, end: 20240326
  26. POTASSIUM CHLORIDE [Concomitant]
     Active Substance: POTASSIUM CHLORIDE
     Route: 048
     Dates: start: 20240322, end: 20240326
  27. METHYLPREDNISOLONE SODIUM SUCCINATE [Concomitant]
     Active Substance: METHYLPREDNISOLONE SODIUM SUCCINATE
     Route: 042
     Dates: start: 20240223, end: 20240223
  28. Aureomycin hydrochloride [Concomitant]
     Route: 050
     Dates: start: 20240319, end: 20240319
  29. LINEZOLID [Concomitant]
     Active Substance: LINEZOLID
     Indication: Antibiotic prophylaxis
     Route: 048
     Dates: start: 20240319, end: 20240319
  30. ATORVASTATIN CALCIUM [Concomitant]
     Active Substance: ATORVASTATIN CALCIUM
     Indication: Lipids decreased
     Route: 048
     Dates: start: 20240321, end: 20240321
  31. TANNIC ACID [Concomitant]
     Active Substance: TANNIC ACID
     Route: 050
     Dates: start: 20240324, end: 20240324
  32. Compound acetaminophen [Concomitant]
     Dosage: FOR ANTIPYRETIC AND ANALGESIC
     Route: 048
     Dates: start: 20240223, end: 20240226
  33. VITAMIN B6 [Concomitant]
     Active Substance: PYRIDOXINE HYDROCHLORIDE
     Dosage: FOR PROTECTIVE MUCOSA
     Route: 042
     Dates: start: 20240223, end: 20240226
  34. SODIUM BICARBONATE [Concomitant]
     Active Substance: SODIUM BICARBONATE
     Dosage: FOR ALKALIZATION
     Route: 042
     Dates: start: 20240223, end: 20240226
  35. OMEPRAZOLE [Concomitant]
     Active Substance: OMEPRAZOLE
     Dosage: FOR STOMACH PROTECTION
     Route: 048
     Dates: start: 20240222, end: 20240228
  36. Triamcinolone and econazole [Concomitant]
     Dosage: FOR ANTI-INFLAMMATORY
     Route: 050
     Dates: start: 20240222, end: 20240228
  37. ROSUVASTATIN CALCIUM [Concomitant]
     Active Substance: ROSUVASTATIN CALCIUM
  38. CLOPIDOGREL BISULFATE [Concomitant]
     Active Substance: CLOPIDOGREL BISULFATE

REACTIONS (10)
  - Cough [Recovered/Resolved]
  - Hypocalcaemia [Not Recovered/Not Resolved]
  - Pneumonitis [Not Recovered/Not Resolved]
  - Lacunar infarction [Not Recovered/Not Resolved]
  - Mobility decreased [Not Recovered/Not Resolved]
  - Muscular weakness [Not Recovered/Not Resolved]
  - Alanine aminotransferase increased [Not Recovered/Not Resolved]
  - Hypokalaemia [Recovered/Resolved]
  - Aspartate aminotransferase increased [Recovered/Resolved]
  - Lacunar infarction [Not Recovered/Not Resolved]

NARRATIVE: CASE EVENT DATE: 20240306
